FAERS Safety Report 18708185 (Version 2)
Quarter: 2021Q1

REPORT INFORMATION
  Report Type: Spontaneous
  Country: US (occurrence: US)
  Receive Date: 20210106
  Receipt Date: 20210125
  Transmission Date: 20210419
  Serious: No
  Sender: FDA-Public Use
  Company Number: US-TAKEDA-2021TUS000513

PATIENT
  Age: 40 Year
  Sex: Male

DRUGS (2)
  1. BRIGATINIB [Suspect]
     Active Substance: BRIGATINIB
     Indication: LUNG NEOPLASM MALIGNANT
     Dosage: 180 MILLIGRAM, QD
     Route: 048
     Dates: start: 202012
  2. BRIGATINIB [Suspect]
     Active Substance: BRIGATINIB
     Indication: BRONCHIAL NEOPLASM

REACTIONS (9)
  - Pruritus [Unknown]
  - Lung disorder [Unknown]
  - Night sweats [Unknown]
  - Headache [Unknown]
  - Chills [Recovered/Resolved]
  - Paraesthesia [Unknown]
  - Pyrexia [Unknown]
  - Hypoaesthesia [Unknown]
  - Dyspepsia [Recovered/Resolved]

NARRATIVE: CASE EVENT DATE: 20201231
